FAERS Safety Report 24131588 (Version 1)
Quarter: 2024Q3

REPORT INFORMATION
  Report Type: Report from Study
  Country: US (occurrence: US)
  Receive Date: 20240724
  Receipt Date: 20240724
  Transmission Date: 20241017
  Serious: Yes (Death)
  Sender: BAYER
  Company Number: US-BAYER-2024A106061

PATIENT
  Age: 64 Year
  Sex: Female
  Weight: 103.4 kg

DRUGS (30)
  1. ADEMPAS [Suspect]
     Active Substance: RIOCIGUAT
     Indication: Pulmonary arterial hypertension
     Dosage: UNK
     Dates: start: 20231116
  2. ADEMPAS [Suspect]
     Active Substance: RIOCIGUAT
     Indication: Pulmonary arterial hypertension
     Dosage: 2.5 MG, TID
     Route: 048
  3. DULOXETINE HYDROCHLORIDE [Concomitant]
     Active Substance: DULOXETINE HYDROCHLORIDE
  4. VITAMINS [Concomitant]
     Active Substance: VITAMINS
  5. JARDIANCE [Concomitant]
     Active Substance: EMPAGLIFLOZIN
  6. CHOLECALCIFEROL [Concomitant]
     Active Substance: CHOLECALCIFEROL
  7. ACETAMINOPHEN\HYDROCODONE [Concomitant]
     Active Substance: ACETAMINOPHEN\HYDROCODONE
  8. ELIQUIS [Concomitant]
     Active Substance: APIXABAN
  9. PREGABALIN [Concomitant]
     Active Substance: PREGABALIN
  10. PROTONIX [Concomitant]
     Active Substance: PANTOPRAZOLE SODIUM
  11. BISOPROLOL FUMARATE [Concomitant]
     Active Substance: BISOPROLOL FUMARATE
  12. LIVALO [Concomitant]
     Active Substance: PITAVASTATIN CALCIUM
  13. PIOGLITAZONE [Concomitant]
     Active Substance: PIOGLITAZONE
  14. ASPIRIN [Concomitant]
     Active Substance: ASPIRIN
  15. PULMICORT TURBUHALER [Concomitant]
     Active Substance: BUDESONIDE
  16. LEVOTHYROXINE SODIUM [Concomitant]
     Active Substance: LEVOTHYROXINE SODIUM
  17. EFFIENT [Concomitant]
     Active Substance: PRASUGREL HYDROCHLORIDE
  18. SPIRONOLACTONE [Concomitant]
     Active Substance: SPIRONOLACTONE
  19. AMIODARONE HYDROCHLORIDE [Concomitant]
     Active Substance: AMIODARONE HYDROCHLORIDE
  20. BUMETANIDE [Concomitant]
     Active Substance: BUMETANIDE
  21. PREDNISONE [Concomitant]
     Active Substance: PREDNISONE
  22. LIDOCAINE [Concomitant]
     Active Substance: LIDOCAINE
  23. DULCOLAX STOOL SOFTENER [Concomitant]
     Active Substance: DOCUSATE SODIUM
  24. OXYGEN [Concomitant]
     Active Substance: OXYGEN
  25. PRASUGREL HYDROCHLORIDE [Concomitant]
     Active Substance: PRASUGREL HYDROCHLORIDE
  26. PROAIR DIGIHALER [Concomitant]
     Active Substance: ALBUTEROL SULFATE
  27. HUMULIN R [Concomitant]
     Active Substance: INSULIN HUMAN
  28. TORSEMIDE [Concomitant]
     Active Substance: TORSEMIDE
  29. CYCLOBENZAPRINE HYDROCHLORIDE [Concomitant]
     Active Substance: CYCLOBENZAPRINE HYDROCHLORIDE
  30. MUCINEX [Concomitant]
     Active Substance: GUAIFENESIN

REACTIONS (1)
  - Death [Fatal]

NARRATIVE: CASE EVENT DATE: 20240714
